FAERS Safety Report 13692451 (Version 7)
Quarter: 2017Q3

REPORT INFORMATION
  Report Type: Report from Study
  Country: AU (occurrence: AU)
  Receive Date: 20170627
  Receipt Date: 20170802
  Transmission Date: 20171127
  Serious: Yes (Other)
  Sender: FDA-Public Use
  Company Number: AU-ASTRAZENECA-2017SE65780

PATIENT
  Age: 696 Month
  Sex: Male

DRUGS (4)
  1. IRESSA [Suspect]
     Active Substance: GEFITINIB
     Indication: LUNG ADENOCARCINOMA
     Dosage: 250 MG
     Route: 048
     Dates: start: 201611
  2. IRESSA [Suspect]
     Active Substance: GEFITINIB
     Indication: EGFR GENE MUTATION
     Dosage: 250 MG
     Route: 048
     Dates: start: 201611
  3. TAGRISSO [Suspect]
     Active Substance: OSIMERTINIB
     Indication: NON-SMALL CELL LUNG CANCER
     Route: 048
     Dates: start: 20170626, end: 20170724
  4. DEXAMETHASONE. [Concomitant]
     Active Substance: DEXAMETHASONE
     Indication: METASTASES TO MENINGES
     Dosage: 4.0MG UNKNOWN
     Route: 048
     Dates: start: 201706, end: 2017

REACTIONS (8)
  - Rash [Unknown]
  - Benign genitourinary tract neoplasm [Unknown]
  - Diarrhoea [Unknown]
  - Thrombocytopenia [Not Recovered/Not Resolved]
  - Off label use [Unknown]
  - Metastases to meninges [Unknown]
  - Hydronephrosis [Unknown]
  - Malignant neoplasm progression [Unknown]

NARRATIVE: CASE EVENT DATE: 201703
